FAERS Safety Report 12741267 (Version 1)
Quarter: 2016Q3

REPORT INFORMATION
  Report Type: Report from Study
  Country: NL (occurrence: NL)
  Receive Date: 20160914
  Receipt Date: 20160914
  Transmission Date: 20161109
  Serious: Yes (Hospitalization, Other)
  Sender: FDA-Public Use
  Company Number: NL-ACCORD-036998

PATIENT
  Sex: Female

DRUGS (2)
  1. PREDNISONE. [Concomitant]
     Active Substance: PREDNISONE
     Dosage: FOR SEVERAL YEARS PRIOR TO MMF?INITIATION, NO DOSE ALTERATIONS WERE MADE DURING THE TREATMENT OF MM
  2. METHOTREXATE. [Suspect]
     Active Substance: METHOTREXATE
     Indication: SCLERODERMA
     Route: 058
     Dates: start: 20070926, end: 20090611

REACTIONS (4)
  - Gastrointestinal haemorrhage [Unknown]
  - Jaundice [Unknown]
  - Off label use [Unknown]
  - Hepatic enzyme increased [Unknown]

NARRATIVE: CASE EVENT DATE: 200906
